FAERS Safety Report 17237893 (Version 1)
Quarter: 2020Q1

REPORT INFORMATION
  Report Type: Spontaneous
  Country: CN (occurrence: CN)
  Receive Date: 20200106
  Receipt Date: 20200106
  Transmission Date: 20200409
  Serious: Yes (Other)
  Sender: FDA-Public Use
  Company Number: CN-FRESENIUS KABI-FK202000114

PATIENT
  Age: 37 Year
  Sex: Male
  Weight: 83 kg

DRUGS (3)
  1. LIPOVENOES MCT (NOT SPECIFIED) [Suspect]
     Active Substance: EGG PHOSPHOLIPIDS\GLYCERIN\MEDIUM-CHAIN TRIGLYCERIDES\SOYBEAN OIL
     Indication: FASTING
     Dosage: 250 ML, QD
     Route: 041
     Dates: start: 20191212, end: 20191212
  2. GLUCOSE [Concomitant]
     Active Substance: DEXTROSE
     Indication: FASTING
     Dosage: 500 ML, QD
     Route: 041
     Dates: start: 20191212, end: 20191212
  3. POTASSIUM CHLORIDE. [Concomitant]
     Active Substance: POTASSIUM CHLORIDE
     Indication: FASTING
     Dosage: 10 ML, QD
     Route: 041
     Dates: start: 20191212, end: 20191212

REACTIONS (4)
  - Chills [Recovering/Resolving]
  - Pyrexia [Recovering/Resolving]
  - Chest discomfort [Recovering/Resolving]
  - Palpitations [Recovering/Resolving]

NARRATIVE: CASE EVENT DATE: 20191212
